FAERS Safety Report 5250960-4 (Version None)
Quarter: 2007Q1

REPORT INFORMATION
  Report Type: 
  Country: None (occurrence: None)
  Receive Date: 20070228
  Receipt Date: 20060831
  Transmission Date: 20070707
  Serious: No
  Sender: FDA-Public Use
  Company Number: US-GLAXOSMITHKLINE-A0614675A

PATIENT
  Age: 39 Year
  Sex: Male
  Weight: 113.6 kg

DRUGS (3)
  1. LAMICTAL [Suspect]
     Indication: EPILEPSY
     Dosage: 400MG TWICE PER DAY
     Route: 048
     Dates: start: 20031107
  2. DIABETES MEDICATION [Concomitant]
  3. ZOCOR [Concomitant]

REACTIONS (1)
  - HEAT EXHAUSTION [None]
